FAERS Safety Report 9369698 (Version 1)
Quarter: 2013Q2

REPORT INFORMATION
  Report Type: Spontaneous
  Country: US (occurrence: US)
  Receive Date: 20130626
  Receipt Date: 20130626
  Transmission Date: 20140414
  Serious: No
  Sender: FDA-Public Use
  Company Number: US-MYLANLABS-2012S1009297

PATIENT
  Age: 74 Year
  Sex: Female
  Weight: 83.92 kg

DRUGS (6)
  1. OMEPRAZOLE DELAYED-RELEASE CAPSULES, USP [Suspect]
     Indication: GASTROOESOPHAGEAL REFLUX DISEASE
     Route: 048
     Dates: start: 201205, end: 201205
  2. GABAPENTIN [Concomitant]
     Route: 048
  3. NARATRIPTAN [Concomitant]
     Route: 048
  4. LISINOPRIL [Concomitant]
     Route: 048
  5. SAVELLA [Concomitant]
     Route: 048
  6. NORTRIPTYLINE [Concomitant]
     Dosage: 10 - 20MG AT BEDTIME
     Route: 048

REACTIONS (3)
  - Diarrhoea [Recovered/Resolved]
  - Gastrointestinal pain [Recovered/Resolved]
  - Abdominal pain [Recovered/Resolved]
